FAERS Safety Report 5678142-2 (Version None)
Quarter: 2008Q1

REPORT INFORMATION
  Report Type: 
  Country: None (occurrence: None)
  Receive Date: 20080319
  Receipt Date: 20080311
  Transmission Date: 20080703
  Serious: Yes (Other)
  Sender: FDA-Public Use
  Company Number: 2008SP005159

PATIENT
  Sex: Female

DRUGS (5)
  1. ASMANEX TWISTHALER [Suspect]
     Indication: ASTHMA
     Dosage: 200 MCG;QD;PO
     Route: 048
     Dates: start: 20051121, end: 20071217
  2. BERODUAL N [Concomitant]
  3. ULTOP S [Concomitant]
  4. ULTOP 20 [Concomitant]
  5. MICONAZOLE NITRATE [Concomitant]

REACTIONS (1)
  - OESOPHAGEAL CANDIDIASIS [None]
